FAERS Safety Report 12965906 (Version 1)
Quarter: 2016Q4

REPORT INFORMATION
  Report Type: Spontaneous
  Country: US (occurrence: US)
  Receive Date: 20161122
  Receipt Date: 20161122
  Transmission Date: 20170207
  Serious: No
  Sender: FDA-Public Use
  Company Number: US-ASTRAZENECA-2016SF17107

PATIENT
  Age: 67 Year
  Sex: Female
  Weight: 90.3 kg

DRUGS (14)
  1. CYMBALTA [Suspect]
     Active Substance: DULOXETINE HYDROCHLORIDE
     Indication: FIBROMYALGIA
     Route: 048
  2. VITAMIN D3 [Concomitant]
     Active Substance: CHOLECALCIFEROL
  3. CYMBALTA [Suspect]
     Active Substance: DULOXETINE HYDROCHLORIDE
     Indication: FIBROMYALGIA
     Dosage: CIT, 60 MG, DAILY
     Route: 048
  4. AROMASIN [Suspect]
     Active Substance: EXEMESTANE
     Indication: HORMONE THERAPY
     Route: 048
     Dates: start: 20160915
  5. AROMASIN [Suspect]
     Active Substance: EXEMESTANE
     Indication: HORMONE THERAPY
     Route: 048
     Dates: start: 201604, end: 20160904
  6. FEVER BLISTER MEDICATION [Concomitant]
     Indication: ORAL HERPES
     Dosage: AS REQUIRED
  7. ARIMIDEX [Suspect]
     Active Substance: ANASTROZOLE
     Route: 048
  8. CYMBALTA [Suspect]
     Active Substance: DULOXETINE HYDROCHLORIDE
     Indication: FIBROMYALGIA
     Route: 048
  9. CALCIUM CITRATE+ D3 [Concomitant]
     Indication: BONE DISORDER
  10. SIMVASTATIN. [Concomitant]
     Active Substance: SIMVASTATIN
     Indication: BLOOD CHOLESTEROL NORMAL
     Route: 048
  11. OMEPRAZOLE. [Suspect]
     Active Substance: OMEPRAZOLE
     Indication: GASTROOESOPHAGEAL REFLUX DISEASE
     Route: 048
  12. FEMARA [Concomitant]
     Active Substance: LETROZOLE
     Route: 048
     Dates: start: 201511
  13. METRO [Concomitant]
     Indication: ROSACEA
     Route: 061
  14. MAGNESIUM [Concomitant]
     Active Substance: MAGNESIUM

REACTIONS (7)
  - Pain [Unknown]
  - Weight decreased [Unknown]
  - Memory impairment [Not Recovered/Not Resolved]
  - Feeling abnormal [Recovered/Resolved]
  - Weight increased [Not Recovered/Not Resolved]
  - Fibromyalgia [Unknown]
  - Dizziness [Not Recovered/Not Resolved]

NARRATIVE: CASE EVENT DATE: 2016
